FAERS Safety Report 13466558 (Version 5)
Quarter: 2019Q3

REPORT INFORMATION
  Report Type: Report from Study
  Country: CN (occurrence: CN)
  Receive Date: 20170421
  Receipt Date: 20190916
  Transmission Date: 20191004
  Serious: Yes (Death, Hospitalization, Other)
  Sender: FDA-Public Use
  Company Number: PHHY2017CN058448

PATIENT
  Age: 44 Year
  Sex: Male
  Weight: 56 kg

DRUGS (44)
  1. TACROLIMUS. [Suspect]
     Active Substance: TACROLIMUS
     Indication: PROPHYLAXIS AGAINST TRANSPLANT REJECTION
     Route: 065
  2. GANCICLOVIR. [Concomitant]
     Active Substance: GANCICLOVIR
     Indication: INFECTION PROPHYLAXIS
     Dosage: 250 MG, QD
     Route: 042
     Dates: start: 20170316, end: 20170320
  3. INSULIN [Concomitant]
     Active Substance: INSULIN NOS
     Indication: BLOOD GLUCOSE INCREASED
     Dosage: 80 U, QD
     Route: 042
     Dates: start: 20170225, end: 20170227
  4. INSULIN [Concomitant]
     Active Substance: INSULIN NOS
     Dosage: 26 U, QD
     Route: 042
     Dates: start: 20170301, end: 20170301
  5. FUROSEMIDE. [Concomitant]
     Active Substance: FUROSEMIDE
     Indication: POLYURIA
     Dosage: 40 MG, QD
     Route: 048
     Dates: start: 20170309, end: 20170309
  6. METHYLPREDNISOLONE. [Suspect]
     Active Substance: METHYLPREDNISOLONE
     Indication: PROPHYLAXIS AGAINST TRANSPLANT REJECTION
     Route: 065
  7. TRIVIT-B [Concomitant]
     Indication: PRODUCT USED FOR UNKNOWN INDICATION
     Dosage: 1 DF, QD
     Route: 042
     Dates: start: 20170225, end: 20170303
  8. ESOMEPRAZOLE. [Concomitant]
     Active Substance: ESOMEPRAZOLE MAGNESIUM
     Indication: PROPHYLAXIS AGAINST GASTROINTESTINAL ULCER
     Dosage: 40 MG, BID
     Route: 042
     Dates: start: 20170320, end: 20170330
  9. MYFORTIC [Suspect]
     Active Substance: MYCOPHENOLATE SODIUM
     Indication: RENAL TRANSPLANT
     Dosage: 1440 MG, QD
     Route: 048
     Dates: start: 20170225, end: 20170227
  10. MYFORTIC [Suspect]
     Active Substance: MYCOPHENOLATE SODIUM
     Indication: IMMUNOSUPPRESSANT DRUG THERAPY
     Dosage: 1620 MG, QD
     Route: 048
     Dates: start: 20170228, end: 20170228
  11. AMBROXOL HYDROCHLORIDE [Concomitant]
     Active Substance: AMBROXOL HYDROCHLORIDE
     Indication: PRODUCT USED FOR UNKNOWN INDICATION
     Dosage: 90 MG, TID
     Route: 042
     Dates: start: 20170330, end: 20170331
  12. MYFORTIC [Suspect]
     Active Substance: MYCOPHENOLATE SODIUM
     Dosage: 720 MG, QD
     Route: 048
     Dates: start: 20170320, end: 20170321
  13. THYMOGLOBULINE [Suspect]
     Active Substance: LAPINE T-LYMPHOCYTE IMMUNE GLOBULIN
     Indication: PROPHYLAXIS AGAINST TRANSPLANT REJECTION
     Dosage: UNK
     Route: 065
     Dates: start: 20170321, end: 20170328
  14. BETALOC [Concomitant]
     Active Substance: METOPROLOL TARTRATE
     Indication: BLOOD PRESSURE INCREASED
     Dosage: 12.5 MG, QD
     Route: 048
     Dates: start: 20170225, end: 20170225
  15. ALANYL GLUTAMINE [Concomitant]
     Active Substance: ALANYL GLUTAMINE
     Indication: PRODUCT USED FOR UNKNOWN INDICATION
     Dosage: 10 G, QD
     Route: 042
     Dates: start: 20170225, end: 20170303
  16. DOMPERIDONE [Concomitant]
     Active Substance: DOMPERIDONE
     Dosage: 10 MG, TID
     Route: 048
     Dates: start: 20170330, end: 20170330
  17. LEVOFLOXACIN. [Concomitant]
     Active Substance: LEVOFLOXACIN
     Indication: PRODUCT USED FOR UNKNOWN INDICATION
     Dosage: 100 ML, QD
     Route: 042
     Dates: start: 20170330, end: 20170330
  18. SODIUM CHLORIDE. [Concomitant]
     Active Substance: SODIUM CHLORIDE
     Indication: PRODUCT USED FOR UNKNOWN INDICATION
     Dosage: 100 ML, QD
     Route: 042
     Dates: start: 20170330, end: 20170330
  19. SIMULECT [Suspect]
     Active Substance: BASILIXIMAB
     Indication: RENAL TRANSPLANT
     Route: 065
  20. SIMULECT [Suspect]
     Active Substance: BASILIXIMAB
     Indication: PROPHYLAXIS AGAINST TRANSPLANT REJECTION
  21. CALCIUM GLUCONATE. [Concomitant]
     Active Substance: CALCIUM GLUCONATE
     Indication: PRODUCT USED FOR UNKNOWN INDICATION
     Dosage: 2 G, QD
     Route: 042
     Dates: start: 20170224, end: 20170224
  22. DIAZEPAM. [Concomitant]
     Active Substance: DIAZEPAM
     Indication: SEDATION
     Dosage: 2.5 MG, QD
     Route: 048
     Dates: start: 20170225, end: 20170225
  23. ATROPINE SULFATE. [Concomitant]
     Active Substance: ATROPINE SULFATE
     Indication: PRODUCT USED FOR UNKNOWN INDICATION
     Dosage: 0.5 MG, QD
     Route: 030
     Dates: start: 20170223, end: 20170223
  24. TALCID [Concomitant]
     Active Substance: HYDROTALCITE
     Indication: CHRONIC GASTRITIS
     Dosage: 10000 MG, TID
     Route: 048
     Dates: start: 20170304, end: 20170305
  25. NIFEDIPINE. [Concomitant]
     Active Substance: NIFEDIPINE
     Indication: BLOOD GLUCOSE INCREASED
     Dosage: 30 MG, QD
     Route: 048
     Dates: start: 20170307, end: 20170308
  26. ACETYLCYSTEINE. [Concomitant]
     Active Substance: ACETYLCYSTEINE
     Indication: HEPATIC FAILURE
     Dosage: 4 G, QD
     Route: 042
     Dates: start: 20170313, end: 20170318
  27. CARBAZOCHROME SULFONATE DE SODIUM [Concomitant]
     Indication: PROPHYLAXIS
     Dosage: UNK
     Route: 042
     Dates: start: 20170329
  28. CEFODIZIME DISODIUM [Concomitant]
     Active Substance: CEFODIZIME SODIUM
     Dosage: 2 G, BID
     Route: 042
     Dates: start: 20170316, end: 20170330
  29. ESTAZOLAM. [Concomitant]
     Active Substance: ESTAZOLAM
     Indication: SLEEP DISORDER
     Dosage: 1 MG, QD
     Route: 042
     Dates: start: 20170227, end: 20170227
  30. FOLIC ACID. [Concomitant]
     Active Substance: FOLIC ACID
     Indication: ANAEMIA
     Dosage: 10 MG, TID
     Route: 048
     Dates: start: 20170327
  31. INSULIN [Concomitant]
     Active Substance: INSULIN NOS
     Dosage: 52 U, QD
     Route: 042
     Dates: start: 20170228, end: 20170228
  32. MYFORTIC [Suspect]
     Active Substance: MYCOPHENOLATE SODIUM
     Dosage: 540 MG, QD
     Route: 048
     Dates: start: 20170322, end: 20170322
  33. MEDROL [Suspect]
     Active Substance: METHYLPREDNISOLONE
     Indication: IMMUNOSUPPRESSANT DRUG THERAPY
     Route: 048
  34. CEFODIZIME DISODIUM [Concomitant]
     Active Substance: CEFODIZIME SODIUM
     Indication: INFECTION PROPHYLAXIS
     Dosage: 2 G, BID
     Route: 042
     Dates: start: 20170224, end: 20170225
  35. ALPROSTADIL. [Concomitant]
     Active Substance: ALPROSTADIL
     Indication: PRODUCT USED FOR UNKNOWN INDICATION
     Dosage: 10 UG, QD
     Route: 048
     Dates: start: 20170323, end: 20170324
  36. FEBUXOSTAT. [Concomitant]
     Active Substance: FEBUXOSTAT
     Indication: GOUT
     Dosage: 40 MG, QD
     Route: 048
     Dates: start: 20170313, end: 20170330
  37. LEUCOGEN [Concomitant]
     Active Substance: LEUCOGEN
     Indication: PLATELET DISORDER
     Dosage: 40 MG, TID
     Route: 048
     Dates: start: 20170326, end: 20170330
  38. LANSOPRAZOLE. [Concomitant]
     Active Substance: LANSOPRAZOLE
     Indication: PROPHYLAXIS AGAINST GASTROINTESTINAL ULCER
     Dosage: 30 MG, BID
     Route: 042
     Dates: start: 20170224, end: 20170225
  39. DOMPERIDONE [Concomitant]
     Active Substance: DOMPERIDONE
     Indication: PRODUCT USED FOR UNKNOWN INDICATION
     Dosage: 10 MG, TID
     Route: 048
     Dates: start: 20170313, end: 20170315
  40. AMILORIDE HCL [Concomitant]
     Active Substance: AMILORIDE HYDROCHLORIDE
     Indication: PRODUCT USED FOR UNKNOWN INDICATION
     Dosage: 1 DF, QD
     Route: 048
     Dates: start: 20170308, end: 20170308
  41. SACCHAROMYCES BOULARDII [Concomitant]
     Active Substance: SACCHAROMYCES CEREVISIAE
     Indication: PRODUCT USED FOR UNKNOWN INDICATION
     Dosage: 1.5 G, TID
     Route: 048
     Dates: start: 20170326, end: 20170330
  42. GANCICLOVIR. [Concomitant]
     Active Substance: GANCICLOVIR
     Dosage: 0.5 G, QD
     Route: 042
     Dates: start: 20170320, end: 20170326
  43. OMEPRAZOLE. [Concomitant]
     Active Substance: OMEPRAZOLE
     Indication: PROPHYLAXIS AGAINST GASTROINTESTINAL ULCER
     Dosage: 20 MG, QD
     Route: 048
     Dates: start: 20170307
  44. ULINASTATIN [Concomitant]
     Active Substance: ULINASTATIN
     Indication: PRODUCT USED FOR UNKNOWN INDICATION
     Dosage: 10 OT, BID
     Route: 042
     Dates: start: 20170224, end: 20170225

REACTIONS (11)
  - Rales [Fatal]
  - Respiratory tract infection fungal [Not Recovered/Not Resolved]
  - Haemoptysis [Not Recovered/Not Resolved]
  - Cough [Fatal]
  - Chest discomfort [Fatal]
  - Lung infection [Fatal]
  - Atelectasis [Fatal]
  - Blood creatinine increased [Unknown]
  - Pleural effusion [Fatal]
  - Pyrexia [Not Recovered/Not Resolved]
  - Renal failure [Not Recovered/Not Resolved]

NARRATIVE: CASE EVENT DATE: 20170311
